FAERS Safety Report 13417575 (Version 1)
Quarter: 2017Q2

REPORT INFORMATION
  Report Type: Spontaneous
  Country: US (occurrence: US)
  Receive Date: 20170407
  Receipt Date: 20170407
  Transmission Date: 20170830
  Serious: Yes (Other)
  Sender: FDA-Public Use
  Company Number: US-MYLANLABS-2017M1019673

PATIENT

DRUGS (2)
  1. LITHIUM. [Suspect]
     Active Substance: LITHIUM
     Indication: PRODUCT USED FOR UNKNOWN INDICATION
     Dosage: UNK
  2. LATUDA [Suspect]
     Active Substance: LURASIDONE HYDROCHLORIDE
     Indication: PRODUCT USED FOR UNKNOWN INDICATION
     Dosage: 20 MG, QD
     Route: 048
     Dates: start: 2016

REACTIONS (5)
  - Dizziness [Not Recovered/Not Resolved]
  - Foetal death [Recovered/Resolved]
  - Somnolence [Not Recovered/Not Resolved]
  - Drug dose omission [Recovered/Resolved]
  - Weight increased [Not Recovered/Not Resolved]
